FAERS Safety Report 24053255 (Version 1)
Quarter: 2024Q3

REPORT INFORMATION
  Report Type: Report from Study
  Country: US (occurrence: US)
  Receive Date: 20240705
  Receipt Date: 20240705
  Transmission Date: 20241016
  Serious: Yes (Other)
  Sender: EMD SERONO INC
  Company Number: US-Merck Healthcare KGaA-2024035330

PATIENT
  Sex: Male

DRUGS (1)
  1. MAVENCLAD [Suspect]
     Active Substance: CLADRIBINE
     Indication: Multiple sclerosis
     Dosage: YEAR ONE THERAPY.
     Route: 048
     Dates: start: 20230608, end: 20230716

REACTIONS (5)
  - Hypertension [Recovered/Resolved]
  - Pyrexia [Recovered/Resolved]
  - Dysarthria [Recovered/Resolved]
  - Aggression [Unknown]
  - Vitamin D decreased [Unknown]
